FAERS Safety Report 9630256 (Version 2)
Quarter: 2013Q4

REPORT INFORMATION
  Report Type: Report from Study
  Country: CA (occurrence: CA)
  Receive Date: 20131017
  Receipt Date: 20131017
  Transmission Date: 20140711
  Serious: Yes (Death)
  Sender: FDA-Public Use
  Company Number: CA-ABBVIE-13P-028-1040000-00

PATIENT
  Age: 70 Year
  Sex: Male
  Weight: 94 kg

DRUGS (2)
  1. HUMIRA [Suspect]
     Indication: PSORIASIS
     Dates: start: 200801
  2. STELARA [Suspect]
     Indication: PSORIASIS
     Dates: start: 200601, end: 200705

REACTIONS (2)
  - Ill-defined disorder [Fatal]
  - Drug ineffective [Not Recovered/Not Resolved]
